FAERS Safety Report 9197166 (Version 2)
Quarter: 2013Q3

REPORT INFORMATION
  Report Type: Spontaneous
  Country: BR (occurrence: BR)
  Receive Date: 20130328
  Receipt Date: 20130716
  Transmission Date: 20140515
  Serious: No
  Sender: FDA-Public Use
  Company Number: BR-ROCHE-1207157

PATIENT
  Sex: Female
  Weight: 54 kg

DRUGS (11)
  1. RIVOTRIL [Suspect]
     Indication: PRODUCT USED FOR UNKNOWN INDICATION
     Route: 065
     Dates: end: 2012
  2. RIVOTRIL [Suspect]
     Route: 065
  3. RIVOTRIL [Suspect]
     Route: 065
  4. RIVOTRIL [Suspect]
     Route: 065
  5. RIVOTRIL [Suspect]
     Route: 065
  6. BENICAR [Concomitant]
  7. ATENSINA [Concomitant]
  8. XARELTO [Concomitant]
  9. ANCORON [Concomitant]
  10. PROLOPA [Concomitant]
     Dosage: 0.5 TABLET
     Route: 065
  11. PANTOPRAZOLE [Concomitant]

REACTIONS (2)
  - Insomnia [Not Recovered/Not Resolved]
  - Muscular weakness [Unknown]
